FAERS Safety Report 22173038 (Version 1)
Quarter: 2023Q2

REPORT INFORMATION
  Report Type: Spontaneous
  Country: None (occurrence: PT)
  Receive Date: 20230404
  Receipt Date: 20230404
  Transmission Date: 20230721
  Serious: Yes (Death, Hospitalization, Other)
  Sender: FDA-Public Use
  Company Number: PT-B.Braun Medical Inc.-2139880

PATIENT
  Age: 6 Year
  Sex: Male

DRUGS (12)
  1. METRONIDAZOLE [Suspect]
     Active Substance: METRONIDAZOLE
     Indication: Appendicitis
  2. COTRIMOXAZOLE [Suspect]
     Active Substance: SULFAMETHOXAZOLE\TRIMETHOPRIM
  3. CYTARABINE [Suspect]
     Active Substance: CYTARABINE
  4. AMPHOTERICIN B [Suspect]
     Active Substance: AMPHOTERICIN B
  5. TEICOPLANIN [Suspect]
     Active Substance: TEICOPLANIN
  6. CYTARABINE [Suspect]
     Active Substance: CYTARABINE
  7. FLUDARABINE [Suspect]
     Active Substance: FLUDARABINE PHOSPHATE
  8. LEVOFLOXACIN [Suspect]
     Active Substance: LEVOFLOXACIN
  9. VORICONAZOLE [Suspect]
     Active Substance: VORICONAZOLE
  10. VANCOMYCIN [Suspect]
     Active Substance: VANCOMYCIN
  11. MICAFUNGIN [Suspect]
     Active Substance: MICAFUNGIN SODIUM
  12. MEROPENEM [Suspect]
     Active Substance: MEROPENEM

REACTIONS (3)
  - Off label use [Fatal]
  - Product administered to patient of inappropriate age [Fatal]
  - Systemic mycosis [Fatal]
